FAERS Safety Report 6412831-7 (Version None)
Quarter: 2009Q4

REPORT INFORMATION
  Report Type: 
  Country: None (occurrence: None)
  Receive Date: 20091023
  Receipt Date: 20091019
  Transmission Date: 20100525
  Serious: Yes (Life-Threatening, Hospitalization)
  Sender: FDA-Public Use
  Company Number: MX-ABBOTT-09P-107-0595640-00

PATIENT
  Sex: Male
  Weight: 87 kg

DRUGS (19)
  1. HUMIRA [Suspect]
     Indication: PSORIASIS
     Dosage: FIRST DOSE
     Route: 058
  2. HUMIRA [Suspect]
     Route: 058
     Dates: start: 20090115, end: 20090815
  3. HUMIRA [Suspect]
     Route: 058
     Dates: start: 20090904
  4. RANITINE [Concomitant]
     Indication: PROPHYLAXIS
     Dosage: 50 MG DAILY
     Route: 042
     Dates: start: 20090902
  5. RANITINE [Concomitant]
     Indication: ORAL DISORDER
  6. METRONIDAZOL [Concomitant]
     Indication: TUBERCULOSIS
     Dosage: 500MG DAILY
     Route: 042
     Dates: start: 20090913
  7. METRONIDAZOL [Concomitant]
     Indication: SEPSIS
  8. ALBUMIN (HUMAN) [Concomitant]
     Indication: BLOOD OSMOLARITY
     Dosage: 120MG
     Route: 042
  9. FUROSEMIDE [Concomitant]
     Indication: DIURETIC THERAPY
     Dosage: 120MG DAILY
     Dates: start: 20090902
  10. OMEPRAZOLE [Concomitant]
     Indication: GASTRITIS
     Route: 042
     Dates: start: 20090913
  11. ENOXAPARIN SODIUM [Concomitant]
     Indication: DRUG USE FOR UNKNOWN INDICATION
     Route: 042
     Dates: start: 20090913
  12. VANCOMYCIN [Concomitant]
     Indication: TUBERCULOSIS
     Route: 042
     Dates: start: 20090913
  13. VANCOMYCIN [Concomitant]
     Indication: SEPSIS
  14. FLUCONAZOLE [Concomitant]
     Indication: DRUG USE FOR UNKNOWN INDICATION
     Route: 042
  15. CIPROFLOXACIN HYDROCHLORIDE [Concomitant]
     Indication: DRUG USE FOR UNKNOWN INDICATION
     Route: 042
  16. RIFAMPICIN [Concomitant]
     Indication: DRUG USE FOR UNKNOWN INDICATION
  17. ETHAMBUTOL HYDROCHLORIDE [Concomitant]
     Indication: DRUG USE FOR UNKNOWN INDICATION
  18. ISONIAZID [Concomitant]
     Indication: DRUG USE FOR UNKNOWN INDICATION
  19. PIRASINAMIDE [Concomitant]
     Indication: DRUG USE FOR UNKNOWN INDICATION

REACTIONS (12)
  - ABDOMINAL DISTENSION [None]
  - DYSPNOEA [None]
  - ENDOCARDITIS [None]
  - LYMPHOMA [None]
  - PLEURAL EFFUSION [None]
  - PNEUMONIA [None]
  - PSORIASIS [None]
  - SPLENIC ABSCESS [None]
  - SPLENIC INFARCTION [None]
  - SPLENIC INFECTION [None]
  - TACHYCARDIA [None]
  - TUBERCULOSIS [None]
